FAERS Safety Report 14308497 (Version 3)
Quarter: 2018Q3

REPORT INFORMATION
  Report Type: Spontaneous
  Country: DE (occurrence: DE)
  Receive Date: 20171220
  Receipt Date: 20180717
  Transmission Date: 20181010
  Serious: Yes (Other)
  Sender: FDA-Public Use
  Company Number: DE-AUROBINDO-AUR-APL-2017-46532

PATIENT

DRUGS (4)
  1. XELODA [Suspect]
     Active Substance: CAPECITABINE
     Indication: HEPATOCELLULAR CARCINOMA
     Dosage: 2 G, DAILY,1G/M2, FROM DAY 15+
     Route: 065
  2. PIOGLITAZONE. [Suspect]
     Active Substance: PIOGLITAZONE
     Indication: HEPATOCELLULAR CARCINOMA
     Dosage: UNK
     Route: 048
  3. ETORICOXIB. [Suspect]
     Active Substance: ETORICOXIB
     Indication: HEPATOCELLULAR CARCINOMA
     Dosage: UNK
     Route: 048
  4. ROFECOXIB [Suspect]
     Active Substance: ROFECOXIB
     Indication: HEPATOCELLULAR CARCINOMA
     Dosage: UNK
     Route: 048

REACTIONS (8)
  - Renal failure [Unknown]
  - Decreased appetite [Unknown]
  - Anaemia [Unknown]
  - Ascites [Unknown]
  - Diarrhoea [Unknown]
  - Oedema [Unknown]
  - Leukopenia [Unknown]
  - Palmar-plantar erythrodysaesthesia syndrome [Unknown]
